FAERS Safety Report 9464433 (Version 2)
Quarter: 2013Q3

REPORT INFORMATION
  Report Type: Spontaneous
  Country: DE (occurrence: DE)
  Receive Date: 20130819
  Receipt Date: 20130823
  Transmission Date: 20140515
  Serious: Yes (Death, Other)
  Sender: FDA-Public Use
  Company Number: DE-AMGEN-DEUSP2013057306

PATIENT
  Sex: Male

DRUGS (2)
  1. NEULASTA [Suspect]
     Indication: BURKITT^S LYMPHOMA
     Dosage: UNK
     Route: 065
  2. CHEMOTHERAPEUTICS [Concomitant]
     Indication: BURKITT^S LYMPHOMA
     Dosage: UNK

REACTIONS (3)
  - Death [Fatal]
  - Pathogen resistance [Unknown]
  - Malaise [Unknown]
